FAERS Safety Report 8261204-3 (Version None)
Quarter: 2012Q2

REPORT INFORMATION
  Report Type: 
  Country: None (occurrence: None)
  Receive Date: 20120405
  Receipt Date: 20120327
  Transmission Date: 20120825
  Serious: Yes (Hospitalization)
  Sender: FDA-Public Use
  Company Number: PHHY2012AU027129

PATIENT
  Sex: Male

DRUGS (4)
  1. CLOZAPINE [Suspect]
     Indication: SCHIZOPHRENIA
     Dates: start: 20111116, end: 20110803
  2. VALPROATE SODIUM [Concomitant]
     Dates: end: 20110803
  3. CLOZARIL [Suspect]
     Dates: start: 20090602
  4. CLOZARIL [Suspect]
     Dosage: 550 MG, UNK
     Dates: start: 19971217

REACTIONS (12)
  - MENTAL DISORDER [None]
  - PYREXIA [None]
  - MENTAL IMPAIRMENT [None]
  - WHITE BLOOD CELL COUNT INCREASED [None]
  - NEUTROPENIA [None]
  - NEUTROPHIL COUNT DECREASED [None]
  - WHITE BLOOD CELL COUNT DECREASED [None]
  - COUGH [None]
  - INFECTION [None]
  - PNEUMONIA [None]
  - NEUTROPHIL COUNT INCREASED [None]
  - URINARY TRACT INFECTION [None]
